FAERS Safety Report 9283455 (Version 1)
Quarter: 2013Q2

REPORT INFORMATION
  Report Type: Spontaneous
  Country: JP (occurrence: None)
  Receive Date: 20130506
  Receipt Date: 20130506
  Transmission Date: 20140414
  Serious: Yes (Hospitalization, Other)
  Sender: FDA-Public Use
  Company Number: 2013P1005161

PATIENT
  Age: 55 Year
  Sex: Male

DRUGS (1)
  1. ARGATROBAN [Suspect]
     Indication: ANTICOAGULANT THERAPY
     Route: 042

REACTIONS (8)
  - Angina unstable [None]
  - Dyspnoea [None]
  - Back pain [None]
  - Coagulopathy [None]
  - Blood creatine phosphokinase increased [None]
  - Coronary artery stenosis [None]
  - Activated partial thromboplastin time prolonged [None]
  - Ventricular hypokinesia [None]
